FAERS Safety Report 11020353 (Version 1)
Quarter: 2015Q2

REPORT INFORMATION
  Report Type: Spontaneous
  Country: CH (occurrence: CH)
  Receive Date: 20150413
  Receipt Date: 20150413
  Transmission Date: 20150821
  Serious: Yes (Hospitalization)
  Sender: FDA-Public Use
  Company Number: CH-ROCHE-1561697

PATIENT
  Age: 78 Year
  Sex: Female
  Weight: 46.7 kg

DRUGS (7)
  1. TAMBOCOR [Concomitant]
     Active Substance: FLECAINIDE ACETATE
     Route: 065
  2. MIRTAZAPIN [Concomitant]
     Active Substance: MIRTAZAPINE
     Route: 065
  3. AVASTIN [Suspect]
     Active Substance: BEVACIZUMAB
     Indication: PRODUCT USED FOR UNKNOWN INDICATION
     Dosage: DOSAGGIO NON NOTOX6 CICLO DI TERAPIA (CAPOX) + AVASTIN DAL 2 CICLO
     Route: 041
     Dates: start: 201407, end: 201501
  4. XELODA [Suspect]
     Active Substance: CAPECITABINE
     Indication: PRODUCT USED FOR UNKNOWN INDICATION
     Dosage: 6 CICLO DI TERAPIA (CAPOX) + AVASTIN DAL 2 CICLO
     Route: 048
     Dates: start: 20140701
  5. HALDOL [Concomitant]
     Active Substance: HALOPERIDOL
     Dosage: HALDOL 10 MG/ML TROPFEN
     Route: 065
  6. PANTOZOL (SWITZERLAND) [Concomitant]
     Active Substance: PANTOPRAZOLE SODIUM
     Route: 065
  7. ELOXATIN [Suspect]
     Active Substance: OXALIPLATIN
     Indication: PRODUCT USED FOR UNKNOWN INDICATION
     Dosage: DOSAGGIO NON NOTOX6 CICLO DI TERAPIA (CAPOX) + AVASTIN DAL 2 CICLO
     Route: 041
     Dates: start: 20140701

REACTIONS (4)
  - Generalised tonic-clonic seizure [Recovered/Resolved]
  - Altered state of consciousness [Recovered/Resolved]
  - Visual impairment [Recovered/Resolved]
  - Posterior reversible encephalopathy syndrome [Recovered/Resolved]

NARRATIVE: CASE EVENT DATE: 20150119
